FAERS Safety Report 8394233-X (Version None)
Quarter: 2012Q2

REPORT INFORMATION
  Report Type: 
  Country: None (occurrence: None)
  Receive Date: 20120530
  Receipt Date: 20120529
  Transmission Date: 20120825
  Serious: Yes (Other)
  Sender: FDA-Public Use
  Company Number: US-BRISTOL-MYERS SQUIBB COMPANY-16542409

PATIENT
  Age: 53 Year
  Sex: Female
  Weight: 86 kg

DRUGS (4)
  1. ZOLOFT [Concomitant]
     Indication: DEPRESSION
  2. YERVOY [Suspect]
     Indication: MALIGNANT MELANOMA
     Dosage: THERAPY STARTED 5 WEEKS AGO.TOTAL INF:2,3 DOSES:LAST DOSE:02MAY2012.
  3. LAMICTAL [Concomitant]
  4. CELEXA [Concomitant]
     Indication: DEPRESSION

REACTIONS (7)
  - DEPRESSION [None]
  - BLOOD GLUCOSE INCREASED [None]
  - RASH GENERALISED [None]
  - DIARRHOEA [None]
  - SUICIDAL IDEATION [None]
  - PRURITUS [None]
  - DECREASED APPETITE [None]
